FAERS Safety Report 4308160-8 (Version None)
Quarter: 2004Q1

REPORT INFORMATION
  Report Type: 
  Country: None (occurrence: None)
  Receive Date: 20040301
  Receipt Date: 20030709
  Transmission Date: 20041129
  Serious: No
  Sender: FDA-Public Use
  Company Number: US-BRISTOL-MYERS SQUIBB COMPANY-12321287

PATIENT
  Age: 79 Year
  Sex: Male
  Weight: 86 kg

DRUGS (6)
  1. GLUCOPHAGE [Suspect]
     Indication: DIABETES MELLITUS
     Route: 048
     Dates: start: 20000501, end: 20030707
  2. VITAMIN C [Concomitant]
     Dates: start: 19950101
  3. VITAMIN E [Concomitant]
     Dates: start: 19950101
  4. ASPIRIN [Concomitant]
     Dosage: DURATION OF THERAPY: 5-6 YEARS
  5. AMARYL [Concomitant]
     Dates: start: 19950101
  6. TOPROL-XL [Concomitant]
     Dates: start: 20020101

REACTIONS (2)
  - POLLAKIURIA [None]
  - RENAL DISORDER [None]
